FAERS Safety Report 19451736 (Version 1)
Quarter: 2021Q2

REPORT INFORMATION
  Report Type: Spontaneous
  Country: US (occurrence: US)
  Receive Date: 20210623
  Receipt Date: 20210623
  Transmission Date: 20210717
  Serious: Yes (Hospitalization)
  Sender: FDA-Public Use
  Company Number: US-ROCHE-2848156

PATIENT
  Age: 57 Year
  Sex: Male

DRUGS (14)
  1. VANCOMYCIN [Concomitant]
     Active Substance: VANCOMYCIN
  2. ZOLOFT [Concomitant]
     Active Substance: SERTRALINE HYDROCHLORIDE
     Indication: ANXIETY
  3. SINEMET [Concomitant]
     Active Substance: CARBIDOPA\LEVODOPA
     Indication: PARKINSON^S DISEASE
  4. KLONOPIN [Suspect]
     Active Substance: CLONAZEPAM
     Indication: SOMNOLENCE
     Route: 048
  5. DUOPA [Suspect]
     Active Substance: CARBIDOPA\LEVODOPA
     Indication: PARKINSON^S DISEASE
     Route: 050
     Dates: start: 20210520
  6. MELATONIN [Concomitant]
     Active Substance: MELATONIN
     Indication: SOMNOLENCE
  7. AMBIEN [Concomitant]
     Active Substance: ZOLPIDEM TARTRATE
     Indication: PARKINSON^S DISEASE
  8. KEFLEX [Concomitant]
     Active Substance: CEPHALEXIN
  9. SEROQUEL [Suspect]
     Active Substance: QUETIAPINE FUMARATE
     Indication: INSOMNIA
     Route: 048
     Dates: start: 2019
  10. TRAZODONE [Suspect]
     Active Substance: TRAZODONE HYDROCHLORIDE
     Indication: SOMNOLENCE
     Route: 048
     Dates: start: 2019
  11. NUPLAZID [Concomitant]
     Active Substance: PIMAVANSERIN TARTRATE
  12. OXYCODONE [Concomitant]
     Active Substance: OXYCODONE
     Indication: RESTLESS LEGS SYNDROME
  13. ASPIRIN. [Concomitant]
     Active Substance: ASPIRIN
  14. BACTRIM [Concomitant]
     Active Substance: SULFAMETHOXAZOLE\TRIMETHOPRIM

REACTIONS (21)
  - General symptom [Recovered/Resolved]
  - Off label use [Unknown]
  - Infection [Not Recovered/Not Resolved]
  - Malaise [Recovered/Resolved]
  - Stoma site hypergranulation [Recovered/Resolved]
  - Stoma site erythema [Recovering/Resolving]
  - Drug ineffective [Unknown]
  - Hyperphagia [Recovering/Resolving]
  - Peripheral swelling [Recovered/Resolved]
  - Feeling jittery [Recovered/Resolved]
  - Stoma site discharge [Not Recovered/Not Resolved]
  - Stoma site pain [Recovering/Resolving]
  - Hyperhidrosis [Recovering/Resolving]
  - Mobility decreased [Recovering/Resolving]
  - White blood cell count increased [Unknown]
  - Pyrexia [Recovered/Resolved]
  - Cold sweat [Recovered/Resolved]
  - Tremor [Recovered/Resolved]
  - Fall [Recovering/Resolving]
  - Somnambulism [Recovering/Resolving]
  - Stoma site infection [Recovered/Resolved]

NARRATIVE: CASE EVENT DATE: 2021
